FAERS Safety Report 5452697-5 (Version None)
Quarter: 2007Q3

REPORT INFORMATION
  Report Type: 
  Country: None (occurrence: None)
  Receive Date: 20070914
  Receipt Date: 20070830
  Transmission Date: 20080115
  Serious: Yes (Hospitalization)
  Sender: FDA-Public Use
  Company Number: JP-GENENTECH-245664

PATIENT
  Sex: Male

DRUGS (4)
  1. BEVACIZUMAB [Suspect]
     Indication: COLON CANCER METASTATIC
     Dosage: 5 MG/KG, QD
     Route: 042
     Dates: start: 20070719
  2. IRINOTECAN HCL [Suspect]
     Indication: COLON CANCER METASTATIC
     Dosage: 120 MG/M2, QD
     Route: 042
     Dates: start: 20070719
  3. FLUOROURACIL [Suspect]
     Indication: COLON CANCER METASTATIC
     Dosage: 200 MG/M2, QD
     Route: 042
     Dates: start: 20070719
  4. ISOVORIN [Suspect]
     Indication: COLON CANCER METASTATIC
     Dosage: 200 MG/M2, UNK
     Dates: start: 20070719

REACTIONS (5)
  - ANOREXIA [None]
  - DEHYDRATION [None]
  - HYPERBILIRUBINAEMIA [None]
  - NEUTROPHIL COUNT DECREASED [None]
  - TRANSIENT ISCHAEMIC ATTACK [None]
